FAERS Safety Report 7375036-1 (Version None)
Quarter: 2011Q1

REPORT INFORMATION
  Report Type: 
  Country: None (occurrence: None)
  Receive Date: 20110325
  Receipt Date: 20110321
  Transmission Date: 20110831
  Serious: Yes (Life-Threatening, Hospitalization)
  Sender: FDA-Public Use
  Company Number: PHHY2011ES22932

PATIENT
  Age: 77 Year
  Sex: Female

DRUGS (7)
  1. LEDERFOLIN [Concomitant]
  2. MYFORTIC [Suspect]
     Indication: RENAL TRANSPLANT
     Dosage: 360 MG, DAILY
     Route: 048
     Dates: start: 20091016, end: 20091026
  3. AMLODIPINE [Concomitant]
  4. OMEPRAZOLE [Concomitant]
  5. PREDNISONE [Interacting]
     Indication: RENAL TRANSPLANT
     Dosage: 30 MG, DAILY
     Route: 048
     Dates: start: 20091016, end: 20091026
  6. SEPTRIN [Concomitant]
  7. CAOSINA [Concomitant]

REACTIONS (8)
  - STUPOR [None]
  - DRUG INTERACTION [None]
  - BLISTER [None]
  - HERPES ZOSTER [None]
  - MENINGOENCEPHALITIS HERPETIC [None]
  - PAIN IN EXTREMITY [None]
  - SOMNOLENCE [None]
  - SPEECH DISORDER [None]
